FAERS Safety Report 5287607-7 (Version None)
Quarter: 2007Q1

REPORT INFORMATION
  Report Type: 
  Country: None (occurrence: None)
  Receive Date: 20070124
  Receipt Date: 20060410
  Transmission Date: 20070707
  Serious: Yes (Hospitalization, Disabling, Other)
  Sender: FDA-Public Use
  Company Number: WAES 0604USA01415

PATIENT
  Age: 74 Year
  Sex: Female
  Weight: 35.8342 kg

DRUGS (34)
  1. INVANZ [Suspect]
     Indication: PANCREATITIS
     Dosage: SEE IMAGE
     Route: 042
     Dates: start: 20060116, end: 20060117
  2. INVANZ [Suspect]
     Indication: PANCREATITIS
     Dosage: SEE IMAGE
     Route: 042
     Dates: start: 20060313, end: 20060313
  3. INVANZ [Suspect]
     Indication: PANCREATITIS
     Dosage: SEE IMAGE
     Route: 042
     Dates: start: 20060314, end: 20060316
  4. INVANZ [Suspect]
     Indication: PANCREATITIS
     Dosage: SEE IMAGE
     Route: 042
     Dates: start: 20060402, end: 20060406
  5. INVANZ [Suspect]
     Indication: PANCREATITIS
     Dosage: SEE IMAGE
     Route: 042
     Dates: start: 20060406, end: 20060407
  6. INVANZ [Suspect]
     Indication: PANCREATITIS
     Dosage: SEE IMAGE
     Route: 042
     Dates: start: 20060402, end: 20060409
  7. INVANZ [Suspect]
     Indication: PANCREATITIS
     Dosage: SEE IMAGE
     Route: 042
     Dates: start: 20060409, end: 20060409
  8. ATIVAN [Concomitant]
  9. CONSTULOSE [Concomitant]
  10. CORDARONE [Concomitant]
  11. DULCOLAX [Concomitant]
  12. DURAGESIC-100 [Concomitant]
  13. GRANULEX [Concomitant]
  14. IMURAN [Concomitant]
  15. LANOXIN [Concomitant]
  16. LASIX [Concomitant]
  17. MICRO-K [Concomitant]
  18. MORPHINA [Concomitant]
  19. MOTRIN [Concomitant]
  20. NEO-SYNEPHRINE [Concomitant]
  21. OCEAN NASAL SPRAY [Concomitant]
  22. PHENERGAN TABLETS/SUPPOSITORIES [Concomitant]
  23. MILK OF MAGNESIA TAB [Concomitant]
  24. PROTONIX [Concomitant]
  25. REGLAN [Concomitant]
  26. SENOKOT-S TABLETS [Concomitant]
  27. SILVADENE [Concomitant]
  28. TYLENOL [Concomitant]
  29. TYLOX [Concomitant]
  30. ZOLOFT [Concomitant]
  31. ZYPREXA [Concomitant]
  32. [COMPOSITION UNSPECIFIED] [Concomitant]
  33. FOLIC ACID [Concomitant]
  34. PREDNISONE TAB [Concomitant]

REACTIONS (10)
  - ABDOMINAL PAIN [None]
  - ANXIETY [None]
  - BLOOD POTASSIUM DECREASED [None]
  - CONFUSIONAL STATE [None]
  - DYSPNOEA [None]
  - HALLUCINATION, AUDITORY [None]
  - HALLUCINATION, VISUAL [None]
  - MENTAL STATUS CHANGES [None]
  - TREMOR [None]
  - WHITE BLOOD CELL COUNT INCREASED [None]
